FAERS Safety Report 25245583 (Version 1)
Quarter: 2025Q2

REPORT INFORMATION
  Report Type: Spontaneous
  Country: US (occurrence: US)
  Receive Date: 20250428
  Receipt Date: 20250428
  Transmission Date: 20250716
  Serious: No
  Sender: FRESENIUS KABI
  Company Number: US-FreseniusKabi-FK202505755

PATIENT
  Age: 69 Year
  Sex: Female

DRUGS (4)
  1. MOXIFLOXACIN [Suspect]
     Active Substance: MOXIFLOXACIN
     Indication: Mycobacterium avium complex infection
  2. ISONIAZID [Concomitant]
     Active Substance: ISONIAZID
     Indication: Mycobacterium avium complex infection
  3. ETHAMBUTOL [Concomitant]
     Active Substance: ETHAMBUTOL HYDROCHLORIDE
     Indication: Mycobacterium avium complex infection
  4. RIFAMPIN [Concomitant]
     Active Substance: RIFAMPIN
     Indication: Mycobacterium avium complex infection

REACTIONS (5)
  - Drug resistance [Unknown]
  - Dizziness [Unknown]
  - Tinnitus [Unknown]
  - Respiratory disorder [Unknown]
  - Condition aggravated [Unknown]
